FAERS Safety Report 4577407-5 (Version None)
Quarter: 2005Q1

REPORT INFORMATION
  Report Type: 
  Country: None (occurrence: None)
  Receive Date: 20050208
  Receipt Date: 20050126
  Transmission Date: 20050727
  Serious: Yes (Hospitalization)
  Sender: FDA-Public Use
  Company Number: HQWYE799024JAN05

PATIENT
  Sex: Male

DRUGS (2)
  1. EFFEXOR XR [Suspect]
     Dosage: 300 MG 1X PER 1 DAY ORAL; SEE IMAGE
     Route: 048
  2. EFFEXOR [Suspect]
     Dosage: 75 MG IN THE MORNING AND 150 MG AT NIGHT,ORAL
     Route: 048

REACTIONS (3)
  - DIZZINESS [None]
  - GASTROINTESTINAL DISORDER [None]
  - ORTHOSTATIC HYPOTENSION [None]
